FAERS Safety Report 7186869-9 (Version None)
Quarter: 2010Q4

REPORT INFORMATION
  Report Type: 
  Country: None (occurrence: None)
  Receive Date: 20101222
  Receipt Date: 20101216
  Transmission Date: 20110411
  Serious: Yes (Other)
  Sender: FDA-Public Use
  Company Number: B0690445A

PATIENT
  Sex: Female

DRUGS (2)
  1. AMIKIN [Suspect]
     Indication: BRONCHIECTASIS
     Route: 042
  2. CEFTAZIDIME (FORTAZ) [Suspect]
     Indication: BRONCHIECTASIS
     Route: 042

REACTIONS (2)
  - HALLUCINATION, VISUAL [None]
  - PHOTOPSIA [None]
